FAERS Safety Report 5361229-1 (Version None)
Quarter: 2007Q2

REPORT INFORMATION
  Report Type: 
  Country: None (occurrence: None)
  Receive Date: 20070614
  Receipt Date: 20070529
  Transmission Date: 20071010
  Serious: Yes (Life-Threatening)
  Sender: FDA-Public Use
  Company Number: DSA_30057_2007

PATIENT
  Sex: Female

DRUGS (2)
  1. HERBESSER (HERBESSER) [Suspect]
     Indication: HYPERTENSION
     Dosage: (100 MG QD ORAL)
     Route: 048
     Dates: start: 19980401
  2. LOCHOL /01224502/ (LOCHOL) [Suspect]
     Indication: HYPERCHOLESTEROLAEMIA
     Dosage: (20 MG ORAL)
     Route: 048
     Dates: start: 20020204, end: 20070128

REACTIONS (1)
  - LARGE INTESTINE CARCINOMA [None]
